FAERS Safety Report 8128683-3 (Version None)
Quarter: 2012Q1

REPORT INFORMATION
  Report Type: 
  Country: None (occurrence: None)
  Receive Date: 20120210
  Receipt Date: 20110103
  Transmission Date: 20120608
  Serious: No
  Sender: FDA-Public Use
  Company Number: US-BRISTOL-MYERS SQUIBB COMPANY-15397219

PATIENT
  Age: 72 Year
  Sex: Female

DRUGS (1)
  1. ORENCIA [Suspect]
     Indication: POLYARTHRITIS
     Dosage: 1 DF = 3 VIALS AT EVERY DOSE WITH 2 DOSES BEING ADMINISTERED 2 WEEKS APART.
     Route: 042
     Dates: start: 20101021, end: 20101103

REACTIONS (1)
  - CHRONIC OBSTRUCTIVE PULMONARY DISEASE [None]
